FAERS Safety Report 9693567 (Version 1)
Quarter: 2013Q4

REPORT INFORMATION
  Report Type: Spontaneous
  Country: GB (occurrence: GB)
  Receive Date: 20131118
  Receipt Date: 20131118
  Transmission Date: 20140711
  Serious: Yes (Hospitalization)
  Sender: FDA-Public Use
  Company Number: GB-TEVA-443534ISR

PATIENT
  Age: 60 Year
  Sex: Female

DRUGS (7)
  1. NITROFURANTOIN [Suspect]
     Indication: PROPHYLAXIS URINARY TRACT INFECTION
     Dosage: AT NIGHT
     Route: 048
     Dates: start: 20110107, end: 20131024
  2. AMITRIPTYLINE [Concomitant]
  3. MOVICOL [Concomitant]
  4. BACLOFEN [Concomitant]
  5. FYBOGEL [Concomitant]
  6. IBUPROFEN [Concomitant]
  7. OXYTETRACYCLINE [Concomitant]

REACTIONS (6)
  - Pulmonary fibrosis [Unknown]
  - Weight decreased [Unknown]
  - Dyspnoea [Unknown]
  - Rash [Unknown]
  - Cough [Unknown]
  - Pleuritic pain [Unknown]
